FAERS Safety Report 19252517 (Version 1)
Quarter: 2021Q2

REPORT INFORMATION
  Report Type: Spontaneous
  Country: US (occurrence: US)
  Receive Date: 20210512
  Receipt Date: 20210512
  Transmission Date: 20210717
  Serious: No
  Sender: FDA-Public Use
  Company Number: US-LUPIN PHARMACEUTICALS INC.-2021-06748

PATIENT
  Age: 36 Year
  Sex: Female

DRUGS (5)
  1. CETIRIZINE [Suspect]
     Active Substance: CETIRIZINE HYDROCHLORIDE
     Indication: TYPE IV HYPERSENSITIVITY REACTION
     Dosage: 20 MILLIGRAM
     Route: 065
  2. MODERNA COVID?19 VACCINE [Concomitant]
     Active Substance: CX-024414
     Dosage: 1 DOSAGE FORM, SINGLE
     Route: 065
     Dates: start: 2021
  3. LISINOPRIL. [Suspect]
     Active Substance: LISINOPRIL
     Indication: TYPE IV HYPERSENSITIVITY REACTION
     Dosage: 5 MILLIGRAM, QD
     Route: 048
  4. JUVEDERM ULTRA [Concomitant]
     Active Substance: HYALURONIC ACID
     Indication: DRUG THERAPY
     Dosage: 1 MILLILITER (IN THE UPPER AND LOWER PART OF THE LIPS)
     Route: 023
     Dates: start: 201911
  5. MODERNA COVID?19 VACCINE [Concomitant]
     Active Substance: CX-024414
     Indication: IMMUNISATION
     Dosage: 1 DOSAGE FORM, SINGLE
     Route: 065
     Dates: start: 202012

REACTIONS (2)
  - Drug ineffective [Unknown]
  - Orthostatic hypotension [Recovered/Resolved]
